FAERS Safety Report 7603503-1 (Version None)
Quarter: 2011Q3

REPORT INFORMATION
  Report Type: 
  Country: None (occurrence: None)
  Receive Date: 20110711
  Receipt Date: 20110711
  Transmission Date: 20111222
  Serious: Yes (Life-Threatening)
  Sender: FDA-Public Use
  Company Number: None

PATIENT
  Sex: Female
  Weight: 50 kg

DRUGS (3)
  1. FENTANYL [Suspect]
     Indication: BACK PAIN
     Dosage: 100MG EVERY 24HR AS NEEDED PATCH
     Route: 062
  2. FENTANYL [Suspect]
     Indication: SURGERY
     Dosage: 100MG EVERY 24HR AS NEEDED PATCH
     Route: 062
  3. FENTANYL [Suspect]
     Dosage: 75MG SSME PATCH LOT#31302 12/12 DEFECT RELEASING TOO MUCH MEDS

REACTIONS (4)
  - LETHARGY [None]
  - DIZZINESS [None]
  - THINKING ABNORMAL [None]
  - PRODUCT QUALITY ISSUE [None]
